FAERS Safety Report 11318896 (Version 1)
Quarter: 2015Q3

REPORT INFORMATION
  Report Type: Spontaneous
  Country: US (occurrence: US)
  Receive Date: 20150729
  Receipt Date: 20150729
  Transmission Date: 20151125
  Serious: No
  Sender: FDA-Public Use
  Company Number: US-ACTELION PHARMACEUTICALS US, INC.-A-NJ2015-117426

PATIENT
  Age: 14 Year
  Sex: Female

DRUGS (3)
  1. OPSUMIT [Suspect]
     Active Substance: MACITENTAN
     Indication: PULMONARY HYPERTENSION
     Dosage: 10 MG, QD
     Route: 048
     Dates: start: 201409
  2. TYVASO [Concomitant]
     Active Substance: TREPROSTINIL
     Dosage: UNK, 9 BREATHS FOUR TIMES PER DAY
     Route: 055
  3. ADCIRCA [Concomitant]
     Active Substance: TADALAFIL
     Dosage: 40 MG, QD

REACTIONS (1)
  - Metrorrhagia [Recovered/Resolved]
